FAERS Safety Report 6110548-X (Version None)
Quarter: 2009Q1

REPORT INFORMATION
  Report Type: 
  Country: None (occurrence: None)
  Receive Date: 20090310
  Receipt Date: 20090216
  Transmission Date: 20090719
  Serious: No
  Sender: FDA-Public Use
  Company Number: US-B.I. PHARMACEUTICALS,INC./RIDGEFIELD-2009-BP-02725BP

PATIENT
  Age: 53 Year
  Sex: Male

DRUGS (2)
  1. MIRAPEX [Suspect]
     Indication: RESTLESS LEGS SYNDROME
     Dosage: .5MG
  2. MIRAPEX [Suspect]
     Indication: PERIODIC LIMB MOVEMENT DISORDER

REACTIONS (5)
  - FATIGUE [None]
  - FEELING ABNORMAL [None]
  - INSOMNIA [None]
  - RESTLESSNESS [None]
  - TINNITUS [None]
